FAERS Safety Report 9382667 (Version 1)
Quarter: 2013Q3

REPORT INFORMATION
  Report Type: Spontaneous
  Country: US (occurrence: US)
  Receive Date: 20130703
  Receipt Date: 20130703
  Transmission Date: 20140515
  Serious: No
  Sender: FDA-Public Use
  Company Number: US-UPSHER-SMITH LABORATORIES, INC.-13000143

PATIENT
  Sex: Female

DRUGS (1)
  1. DIVIGEL [Suspect]
     Indication: HOT FLUSH
     Dosage: 1 MG, QD
     Route: 061

REACTIONS (2)
  - Drug ineffective [Unknown]
  - Oestradiol decreased [Unknown]
